FAERS Safety Report 21989337 (Version 1)
Quarter: 2023Q1

REPORT INFORMATION
  Report Type: Spontaneous
  Country: US (occurrence: None)
  Receive Date: 20230212
  Receipt Date: 20230212
  Transmission Date: 20230417
  Serious: Yes (unspecified)
  Sender: FDA-Public Use
  Company Number: None

PATIENT
  Sex: 0

DRUGS (1)
  1. RITUXIMAB-PVVR [Suspect]
     Active Substance: RITUXIMAB-PVVR

REACTIONS (4)
  - Infusion related reaction [None]
  - Flushing [None]
  - Chills [None]
  - Chills [None]

NARRATIVE: CASE EVENT DATE: 20230112
